FAERS Safety Report 9425563 (Version 1)
Quarter: 2013Q3

REPORT INFORMATION
  Report Type: Spontaneous
  Country: US (occurrence: US)
  Receive Date: 20130729
  Receipt Date: 20130729
  Transmission Date: 20140515
  Serious: No
  Sender: FDA-Public Use
  Company Number: US-MYLANLABS-2012S1023975

PATIENT
  Age: 44 Year
  Sex: Female
  Weight: 54.43 kg

DRUGS (4)
  1. LEVOTHYROXINE SODIUM TABLETS, USP [Suspect]
     Indication: HYPOTHYROIDISM
     Route: 048
     Dates: start: 20121101, end: 20121115
  2. PANTOPRAZOLE [Concomitant]
     Indication: GASTROOESOPHAGEAL REFLUX DISEASE
  3. CYCLOBENZAPRINE [Concomitant]
     Indication: MUSCLE SPASMS
  4. VITAMIN B12 [Concomitant]
     Indication: ANAEMIA VITAMIN B12 DEFICIENCY

REACTIONS (2)
  - Pruritus generalised [Recovering/Resolving]
  - Tongue disorder [Recovering/Resolving]
